FAERS Safety Report 23221474 (Version 1)
Quarter: 2023Q4

REPORT INFORMATION
  Report Type: Spontaneous
  Country: FR (occurrence: FR)
  Receive Date: 20231123
  Receipt Date: 20231123
  Transmission Date: 20240110
  Serious: Yes (Hospitalization)
  Sender: FDA-Public Use
  Company Number: None

PATIENT
  Age: 78 Year
  Sex: Male
  Weight: 78 kg

DRUGS (12)
  1. OXALIPLATIN [Suspect]
     Active Substance: OXALIPLATIN
     Indication: Rectal adenocarcinoma
     Dosage: UNIT DOSE:127.5MG,,FREQUENCY TIME:1 TOTAL,DURATION:1 DAYS
     Dates: start: 20230810, end: 20230810
  2. OXALIPLATIN [Suspect]
     Active Substance: OXALIPLATIN
     Dates: start: 20230727, end: 20230727
  3. METFORMIN HYDROCHLORIDE [Concomitant]
     Active Substance: METFORMIN HYDROCHLORIDE
     Indication: Product used for unknown indication
     Dosage: UNIT DOSE:500MG,FREQUENCY ITME:1 DAY
  4. FLUOROURACIL [Concomitant]
     Active Substance: FLUOROURACIL
     Indication: Rectal adenocarcinoma
     Dosage: UNIT DOSE:3600MG,FREQUENCY TIME:1 TOTAL,DURATION:1 DAYS
     Dates: start: 20230810, end: 20230810
  5. FLUOROURACIL [Concomitant]
     Active Substance: FLUOROURACIL
     Dates: start: 20230727, end: 20230727
  6. IRINOTECAN HYDROCHLORIDE [Concomitant]
     Active Substance: IRINOTECAN HYDROCHLORIDE
     Indication: Rectal adenocarcinoma
     Dosage: UNIT DOSE:270MG,FREQUENCY TIME:1 TOTAL,DURATION:1 DAYS
     Dates: start: 20230810, end: 20230810
  7. IRINOTECAN HYDROCHLORIDE [Concomitant]
     Active Substance: IRINOTECAN HYDROCHLORIDE
     Dosage: UNIT DOSE:270MG,FREQUENCY TIME:1 TOTAL,DURATION:1 DAYS
     Dates: start: 20230727, end: 20230727
  8. SIMVASTATIN [Concomitant]
     Active Substance: SIMVASTATIN
     Indication: Product used for unknown indication
     Dosage: UNIT DOSE:20MG,FREQUENCY TIME:1 DAYS
  9. ACETAMINOPHEN [Concomitant]
     Active Substance: ACETAMINOPHEN
     Indication: Product used for unknown indication
     Dosage: FREQUENCY TIME:1 AS REQUIRED
  10. ESOMEPRAZOLE [Concomitant]
     Active Substance: ESOMEPRAZOLE
     Indication: Product used for unknown indication
     Dosage: UNIT DOSE:20MG,FREQUENCY TIME:1 DAYS
  11. LEUCOVORIN [Concomitant]
     Active Substance: LEUCOVORIN\LEUCOVORIN CALCIUM
     Indication: Rectal adenocarcinoma
     Dosage: UNIT DOSE:400MG,FREQUENCY TIME:1 TOTAL,DURATION:1 DAYS
     Dates: start: 20230810, end: 20230810
  12. LEUCOVORIN [Concomitant]
     Active Substance: LEUCOVORIN\LEUCOVORIN CALCIUM
     Dosage: UNIT DOSE:400MG,FREQUENCY TIME:1 TOTAL,DURATION:1 DAYS
     Dates: start: 20230727, end: 20230727

REACTIONS (1)
  - Anaphylactoid reaction [Recovered/Resolved]

NARRATIVE: CASE EVENT DATE: 20230810
